FAERS Safety Report 25501650 (Version 1)
Quarter: 2025Q3

REPORT INFORMATION
  Report Type: Spontaneous
  Country: CN (occurrence: CN)
  Receive Date: 20250701
  Receipt Date: 20250701
  Transmission Date: 20251020
  Serious: Yes (Hospitalization)
  Sender: BEIGENE
  Company Number: CN-BEIGENE-BGN-2025-010125

PATIENT
  Age: 77 Year
  Weight: 46.4 kg

DRUGS (14)
  1. TISLELIZUMAB [Suspect]
     Active Substance: TISLELIZUMAB
     Indication: Lip and/or oral cavity cancer
  2. TISLELIZUMAB [Suspect]
     Active Substance: TISLELIZUMAB
     Route: 041
  3. TISLELIZUMAB [Suspect]
     Active Substance: TISLELIZUMAB
     Route: 041
  4. TISLELIZUMAB [Suspect]
     Active Substance: TISLELIZUMAB
  5. DOCETAXEL [Suspect]
     Active Substance: DOCETAXEL
     Indication: Lip and/or oral cavity cancer
     Route: 041
  6. DOCETAXEL [Suspect]
     Active Substance: DOCETAXEL
  7. NEDAPLATIN [Suspect]
     Active Substance: NEDAPLATIN
     Indication: Lip and/or oral cavity cancer
     Route: 041
  8. NEDAPLATIN [Suspect]
     Active Substance: NEDAPLATIN
  9. SODIUM CHLORIDE [Concomitant]
     Active Substance: SODIUM CHLORIDE
     Indication: Vehicle solution use
  10. SODIUM CHLORIDE [Concomitant]
     Active Substance: SODIUM CHLORIDE
     Route: 041
  11. SODIUM CHLORIDE [Concomitant]
     Active Substance: SODIUM CHLORIDE
  12. SODIUM CHLORIDE [Concomitant]
     Active Substance: SODIUM CHLORIDE
     Route: 041
  13. SODIUM CHLORIDE [Concomitant]
     Active Substance: SODIUM CHLORIDE
  14. SODIUM CHLORIDE [Concomitant]
     Active Substance: SODIUM CHLORIDE
     Route: 041

REACTIONS (1)
  - Myelosuppression [Recovering/Resolving]
